FAERS Safety Report 8368817 (Version 6)
Quarter: 2012Q4

REPORT INFORMATION
  Report Type: 
  Country: US (occurrence: US)
  Receive Date: 20120131
  Receipt Date: 20121015
  Transmission Date: 20130627
  Serious: Yes (Death, Hospitalization, Other)
  Sender: FDA-Public Use
  Company Number: US-BIOGENIDEC-2012BI002538

PATIENT
  Age: 54 Year
  Sex: Male

DRUGS (6)
  1. TYSABRI [Suspect]
     Indication: MULTIPLE SCLEROSIS
     Route: 042
     Dates: start: 20070227, end: 20111115
  2. AMPYRA [Concomitant]
     Indication: GAIT DISTURBANCE
  3. METHADONE [Concomitant]
  4. GABAPENTIN [Concomitant]
  5. FLUOXETINE HCL [Concomitant]
     Dates: start: 20111228
  6. ABILIFY [Concomitant]

REACTIONS (6)
  - Pneumonia aspiration [Fatal]
  - Progressive multifocal leukoencephalopathy [Not Recovered/Not Resolved]
  - Convulsion [Recovered/Resolved]
  - Multiple sclerosis [Not Recovered/Not Resolved]
  - Aphasia [Not Recovered/Not Resolved]
  - Dysarthria [Not Recovered/Not Resolved]
